FAERS Safety Report 25288257 (Version 1)
Quarter: 2025Q2

REPORT INFORMATION
  Report Type: Spontaneous
  Country: CO (occurrence: CO)
  Receive Date: 20250509
  Receipt Date: 20250509
  Transmission Date: 20250716
  Serious: Yes (Death, Other)
  Sender: BAYER HEALTHCARE PHARMACEUTICALS INC.
  Company Number: CO-BAYER-2025A062758

PATIENT
  Age: 75 Year
  Sex: Female

DRUGS (1)
  1. ADEMPAS [Suspect]
     Active Substance: RIOCIGUAT
     Indication: Pulmonary hypertension
     Dates: end: 20250403

REACTIONS (2)
  - Cardio-respiratory arrest [Fatal]
  - General physical health deterioration [None]

NARRATIVE: CASE EVENT DATE: 20250405
